FAERS Safety Report 20791053 (Version 1)
Quarter: 2022Q2

REPORT INFORMATION
  Report Type: Spontaneous
  Country: ES (occurrence: ES)
  Receive Date: 20220505
  Receipt Date: 20220505
  Transmission Date: 20220720
  Serious: Yes (Hospitalization, Other)
  Sender: FDA-Public Use
  Company Number: None

PATIENT
  Age: 69 Year
  Sex: Female

DRUGS (4)
  1. STIVARGA [Suspect]
     Active Substance: REGORAFENIB
     Indication: Colon cancer
     Dosage: 80 MG, UNK
     Route: 048
     Dates: start: 20200922, end: 20211129
  2. FAMOTIDINA NORMON [Concomitant]
     Indication: Dyspepsia
     Dosage: 40.0 MG CE
     Route: 048
     Dates: start: 20210511
  3. DEXKETOPROFEN TROMETAMOL [Concomitant]
     Active Substance: DEXKETOPROFEN TROMETAMOL
     Indication: Arthritis
     Dosage: 25.0 MG DECOCE
     Route: 048
     Dates: start: 20211118
  4. LEVOSULPIRIDE [Concomitant]
     Active Substance: LEVOSULPIRIDE
     Indication: Dyspepsia
     Dosage: 25.0 MG DECE
     Route: 048
     Dates: start: 20210511

REACTIONS (1)
  - Osteonecrosis [Not Recovered/Not Resolved]

NARRATIVE: CASE EVENT DATE: 20211129
